FAERS Safety Report 6566561-1 (Version None)
Quarter: 2010Q1

REPORT INFORMATION
  Report Type: 
  Country: None (occurrence: None)
  Receive Date: 20100202
  Receipt Date: 20100122
  Transmission Date: 20100710
  Serious: Yes (Other)
  Sender: FDA-Public Use
  Company Number: IT-PFIZER INC-2009306641

PATIENT
  Age: 40 Year
  Sex: Male

DRUGS (2)
  1. SUTENT [Suspect]
     Indication: RENAL CELL CARCINOMA
     Dosage: 50 MG, 4 CYCLES, 4 WEEKS ON 2 WEEKS OFF
     Dates: start: 20090101
  2. SUTENT [Suspect]
     Dosage: 37.5 MG, 3 CYCLES, 4 WEEKS ON 2 WEEKS OFF

REACTIONS (1)
  - ERECTILE DYSFUNCTION [None]
